FAERS Safety Report 4909203-0 (Version None)
Quarter: 2006Q1

REPORT INFORMATION
  Report Type: 
  Country: None (occurrence: None)
  Receive Date: 20060208
  Receipt Date: 20060126
  Transmission Date: 20060701
  Serious: Yes (Other)
  Sender: FDA-Public Use
  Company Number: HQWYE537327JAN06

PATIENT
  Sex: Female

DRUGS (3)
  1. PHENERGAN [Suspect]
     Indication: VOMITING
     Dates: start: 20040901, end: 20040901
  2. REGLAN [Suspect]
     Indication: VOMITING
     Dates: start: 20040901
  3. ZOFRAN [Suspect]
     Indication: VOMITING
     Dates: start: 20040901

REACTIONS (3)
  - ANTEPARTUM HAEMORRHAGE [None]
  - DRUG EXPOSURE DURING PREGNANCY [None]
  - INTRA-UTERINE DEATH [None]
